FAERS Safety Report 4524998-6 (Version None)
Quarter: 2004Q4

REPORT INFORMATION
  Report Type: 
  Country: None (occurrence: None)
  Receive Date: 20041117
  Receipt Date: 20030711
  Transmission Date: 20050328
  Serious: Yes (Other)
  Sender: FDA-Public Use
  Company Number: C2003-1745.01

PATIENT
  Age: 24 Year
  Sex: Female

DRUGS (6)
  1. CLOZAPINE [Suspect]
     Indication: MANIA
     Dosage: 200MG HS, THEN 150MG HS, THEN HOLD, ORAL
     Route: 048
     Dates: start: 20030211, end: 20030716
  2. CLOZAPINE [Suspect]
     Indication: PARANOIA
     Dosage: 200MG HS, THEN 150MG HS, THEN HOLD, ORAL
     Route: 048
     Dates: start: 20030211, end: 20030716
  3. METFORMIN HCL [Concomitant]
  4. OLANZAPINE [Concomitant]
  5. DOCUSATE SODIUM [Concomitant]
  6. MEDROXYPROGESTERONE [Concomitant]

REACTIONS (3)
  - DIABETES MELLITUS [None]
  - NEUTROPENIA [None]
  - WEIGHT INCREASED [None]
